FAERS Safety Report 14260959 (Version 1)
Quarter: 2017Q4

REPORT INFORMATION
  Report Type: Spontaneous
  Country: US (occurrence: None)
  Receive Date: 20171207
  Receipt Date: 20171207
  Transmission Date: 20180321
  Serious: Yes (Hospitalization)
  Sender: FDA-Public Use
  Company Number: None

PATIENT
  Age: 70 Year
  Sex: Female

DRUGS (16)
  1. MIDODRINE [Concomitant]
     Active Substance: MIDODRINE
  2. DIPHEN/ATROP [Concomitant]
     Active Substance: ATROPINE SULFATE\DIPHENOXYLATE
  3. LONSURF [Suspect]
     Active Substance: TIPIRACIL HYDROCHLORIDE\TRIFLURIDINE
     Indication: COLON CANCER
     Route: 048
     Dates: start: 20170621
  4. PAREGORIC [Concomitant]
     Active Substance: MORPHINE
  5. LIDO/PRIL OCN [Concomitant]
  6. KLOR-CON [Concomitant]
     Active Substance: POTASSIUM CHLORIDE
  7. ESCITALOPRAM [Concomitant]
     Active Substance: ESCITALOPRAM OXALATE
  8. CREON [Concomitant]
     Active Substance: PANCRELIPASE AMYLASE\PANCRELIPASE LIPASE\PANCRELIPASE PROTEASE
  9. OCTREOTIDE 100MCG/ML FRESENIUS KABI [Suspect]
     Active Substance: OCTREOTIDE
     Indication: COLON CANCER
     Route: 058
     Dates: start: 20171031
  10. HYDROCO/APAP [Concomitant]
     Active Substance: ACETAMINOPHEN\HYDROCODONE
  11. TRIAMCINOLON [Concomitant]
  12. DILTIAZEM. [Concomitant]
     Active Substance: DILTIAZEM
  13. CYCLOBENZAPR [Concomitant]
     Active Substance: CYCLOBENZAPRINE
  14. XANAX [Concomitant]
     Active Substance: ALPRAZOLAM
  15. AMITRIPTYLIN [Concomitant]
     Active Substance: AMITRIPTYLINE
  16. CIPROFLOXACN [Concomitant]
     Active Substance: CIPROFLOXACIN

REACTIONS (1)
  - Abdominal discomfort [None]

NARRATIVE: CASE EVENT DATE: 20171116
